FAERS Safety Report 18500029 (Version 1)
Quarter: 2020Q4

REPORT INFORMATION
  Report Type: Spontaneous
  Country: US (occurrence: US)
  Receive Date: 20201113
  Receipt Date: 20201113
  Transmission Date: 20210114
  Serious: No
  Sender: FDA-Public Use
  Company Number: NVSC2020US304369

PATIENT

DRUGS (1)
  1. AFINITOR [Suspect]
     Active Substance: EVEROLIMUS
     Indication: PRIMITIVE NEUROECTODERMAL TUMOUR
     Dosage: UNK
     Route: 065

REACTIONS (1)
  - Dysgeusia [Unknown]
